FAERS Safety Report 7595506-0 (Version None)
Quarter: 2011Q3

REPORT INFORMATION
  Report Type: 
  Country: None (occurrence: None)
  Receive Date: 20110707
  Receipt Date: 20110624
  Transmission Date: 20111222
  Serious: Yes (Hospitalization)
  Sender: FDA-Public Use
  Company Number: US-JNJFOC-20110612051

PATIENT
  Sex: Female
  Weight: 57.5 kg

DRUGS (6)
  1. CIPROFLOXACIN HCL [Concomitant]
  2. INFLIXIMAB, RECOMBINANT [Suspect]
     Indication: CROHN'S DISEASE
     Route: 042
     Dates: start: 20110408
  3. TPN [Concomitant]
  4. ANUSOL HC [Concomitant]
  5. INFLIXIMAB, RECOMBINANT [Suspect]
     Route: 042
     Dates: start: 20100123
  6. MERCAPTOPURINE [Concomitant]

REACTIONS (1)
  - CROHN'S DISEASE [None]
